FAERS Safety Report 8230769-X (Version None)
Quarter: 2012Q1

REPORT INFORMATION
  Report Type: 
  Country: None (occurrence: None)
  Receive Date: 20120323
  Receipt Date: 20120315
  Transmission Date: 20120608
  Serious: Yes (Hospitalization)
  Sender: FDA-Public Use
  Company Number: US-BAYER-2011-074901

PATIENT
  Sex: Female
  Weight: 79 kg

DRUGS (11)
  1. NSAID'S [Concomitant]
     Dosage: UNK
     Route: 048
     Dates: start: 20080101
  2. DROSPIRENONE AND ETHINYL ESTRADIOL [Suspect]
     Dosage: UNK
     Dates: start: 20080101, end: 20100101
  3. NAPROSYN [Concomitant]
     Dosage: UNK
  4. DESYREL [Concomitant]
     Dosage: UNK
  5. YAZ [Suspect]
     Dosage: UNK
     Dates: start: 20080101, end: 20100101
  6. ASACOL [Concomitant]
     Indication: COLITIS ULCERATIVE
     Dosage: UNK
  7. VERAMYST [Concomitant]
     Dosage: UNK
  8. POTASSIUM CHLORIDE [Concomitant]
     Indication: SUPPLEMENTATION THERAPY
     Dosage: UNK
     Route: 048
     Dates: start: 20090101
  9. ADDERALL 5 [Concomitant]
     Dosage: UNK
  10. DECONGEST.AND OTH.NASAL PREP.FOR TOPICAL USE [Concomitant]
  11. TRAZODONE HCL [Concomitant]

REACTIONS (4)
  - INJURY [None]
  - GALLBLADDER DISORDER [None]
  - CHOLECYSTITIS CHRONIC [None]
  - PAIN [None]
